FAERS Safety Report 18060705 (Version 1)
Quarter: 2020Q3

REPORT INFORMATION
  Report Type: Spontaneous
  Country: US (occurrence: US)
  Receive Date: 20200723
  Receipt Date: 20200723
  Transmission Date: 20201103
  Serious: Yes (Hospitalization)
  Sender: FDA-Public Use
  Company Number: US-MYLANLABS-2020M1065904

PATIENT
  Age: 7 Month
  Sex: Female

DRUGS (2)
  1. METHOTREXATE. [Suspect]
     Active Substance: METHOTREXATE
     Dosage: TWO WEEKS AFTER THE FIRST METHOTREXATE INFUSION, SHE RECEIVED...
  2. METHOTREXATE. [Suspect]
     Active Substance: METHOTREXATE
     Indication: ACUTE LYMPHOCYTIC LEUKAEMIA
     Dosage: THE FIRST DOSE OF HIGH?DOSE METHOTREXATE WAS REDUCED TO 3.5 G/M2

REACTIONS (2)
  - Fontanelle bulging [Recovered/Resolved]
  - Idiopathic intracranial hypertension [Recovered/Resolved]
